FAERS Safety Report 4352215-9 (Version None)
Quarter: 2004Q2

REPORT INFORMATION
  Report Type: 
  Country: None (occurrence: None)
  Receive Date: 20040428
  Receipt Date: 20040413
  Transmission Date: 20050107
  Serious: Yes (Hospitalization)
  Sender: FDA-Public Use
  Company Number: EWC040438840

PATIENT
  Age: 56 Year
  Sex: Female

DRUGS (9)
  1. GEMZAR [Suspect]
     Indication: NON-SMALL CELL LUNG CANCER
     Dosage: 1400 MG/M2/3 OTHER
     Dates: start: 20040401, end: 20040401
  2. DURAGESIC [Concomitant]
  3. EURODIN (ESTAZOLAM) [Concomitant]
  4. MAGNESIUM OXIDE [Concomitant]
  5. PANTOLOC (PANTIOPRAZOLE SODIUM) [Concomitant]
  6. PRIMPERAN TAB [Concomitant]
  7. VIOXX [Concomitant]
  8. XANAX [Concomitant]
  9. PROPOXYPHENE [Concomitant]

REACTIONS (5)
  - ALANINE AMINOTRANSFERASE INCREASED [None]
  - ASPARTATE AMINOTRANSFERASE INCREASED [None]
  - BLOOD ALKALINE PHOSPHATASE INCREASED [None]
  - RASH PAPULAR [None]
  - URTICARIA [None]
